FAERS Safety Report 9536782 (Version 2)
Quarter: 2013Q4

REPORT INFORMATION
  Report Type: Report from Study
  Country: US (occurrence: US)
  Receive Date: 20130919
  Receipt Date: 20131017
  Transmission Date: 20140711
  Serious: Yes (Other)
  Sender: FDA-Public Use
  Company Number: US-MYLANLABS-2013S1020516

PATIENT
  Age: 21 Year
  Sex: Female
  Weight: 83 kg

DRUGS (3)
  1. AMNESTEEM CAPSULES [Suspect]
     Indication: ACNE
     Dates: start: 20130103, end: 201303
  2. AMNESTEEM CAPSULES [Suspect]
     Indication: ACNE
     Dates: start: 201307, end: 201309
  3. ORAL CONTRACEPTIVE NOS [Concomitant]

REACTIONS (1)
  - Gastrointestinal haemorrhage [Recovered/Resolved]
